FAERS Safety Report 5480339-1 (Version None)
Quarter: 2007Q4

REPORT INFORMATION
  Report Type: 
  Country: None (occurrence: None)
  Receive Date: 20071009
  Receipt Date: 20071001
  Transmission Date: 20080405
  Serious: Yes (Other)
  Sender: FDA-Public Use
  Company Number: US-KINGPHARMUSA00001-K200701266

PATIENT

DRUGS (2)
  1. ALTACE [Suspect]
     Indication: BLOOD PRESSURE INCREASED
     Dosage: 10 MG, QD
     Route: 048
     Dates: start: 20070626
  2. AMLODIPINE [Suspect]
     Indication: BLOOD PRESSURE INCREASED
     Dosage: 5 MG, QD
     Route: 048
     Dates: start: 20070817, end: 20070906

REACTIONS (2)
  - DRUG INTERACTION [None]
  - SOMNOLENCE [None]
